FAERS Safety Report 15517062 (Version 1)
Quarter: 2018Q4

REPORT INFORMATION
  Report Type: Spontaneous
  Country: FR (occurrence: FR)
  Receive Date: 20181017
  Receipt Date: 20181017
  Transmission Date: 20190205
  Serious: Yes (Death, Hospitalization, Other)
  Sender: FDA-Public Use
  Company Number: FR-BAYER-2018-190313

PATIENT
  Age: 82 Year
  Sex: Male

DRUGS (4)
  1. SERENOA REPENS EXTRACT [Concomitant]
     Active Substance: HERBALS\SAW PALMETTO
     Dosage: UNK
  2. HYDROCHLOROTHIAZIDE. [Concomitant]
     Active Substance: HYDROCHLOROTHIAZIDE
     Dosage: UNK
  3. LOSARTAN. [Concomitant]
     Active Substance: LOSARTAN
     Dosage: UNK
  4. ACETYLSALICYLIC ACID({=100 MG) [Suspect]
     Active Substance: ASPIRIN

REACTIONS (3)
  - Peritonitis pneumococcal [Fatal]
  - Duodenal ulcer perforation [None]
  - Pneumococcal bacteraemia [None]
